FAERS Safety Report 15672645 (Version 1)
Quarter: 2018Q4

REPORT INFORMATION
  Report Type: Report from Study
  Country: US (occurrence: US)
  Receive Date: 20181129
  Receipt Date: 20181129
  Transmission Date: 20190205
  Serious: No
  Sender: FDA-Public Use
  Company Number: US-TESARO-2018-TSO0784-US

PATIENT
  Age: 72 Year
  Sex: Female
  Weight: 53.61 kg

DRUGS (3)
  1. ZEJULA [Suspect]
     Active Substance: NIRAPARIB
     Indication: OVARIAN CANCER
     Dosage: 100 MG, THREE TIMES A DAY
     Route: 048
     Dates: start: 20180922
  2. ZEJULA [Suspect]
     Active Substance: NIRAPARIB
     Dosage: 300 MG, QD
     Route: 048
  3. ZEJULA [Suspect]
     Active Substance: NIRAPARIB
     Dosage: 200 MG, IN THE EVENING WITH FOOD
     Route: 048

REACTIONS (7)
  - Blood glucose increased [Unknown]
  - Adverse event [Unknown]
  - Nausea [Unknown]
  - Fatigue [Unknown]
  - Constipation [Unknown]
  - Rash [Not Recovered/Not Resolved]
  - Diarrhoea [Not Recovered/Not Resolved]

NARRATIVE: CASE EVENT DATE: 201809
